FAERS Safety Report 6290581-8 (Version None)
Quarter: 2009Q4

REPORT INFORMATION
  Report Type: 
  Country: None (occurrence: None)
  Receive Date: 20090728
  Receipt Date: 20090728
  Transmission Date: 20100525
  Serious: No
  Sender: FDA-Public Use
  Company Number: None

PATIENT
  Age: 48 Year
  Sex: Female

DRUGS (9)
  1. AVELOX [Suspect]
     Dosage: 400 MG QD
     Dates: start: 20060527, end: 20060602
  2. LAMICTAL [Suspect]
     Dates: start: 20060508, end: 20060615
  3. KEFLEX [Suspect]
     Dosage: 500 MG Q.I.D.
     Dates: start: 20060522, end: 20060529
  4. LEXAPRO [Concomitant]
  5. SPIRIVA [Concomitant]
  6. PREMARIN [Concomitant]
  7. SYNTHROID [Concomitant]
  8. ADVAIR HFA [Concomitant]
  9. STEROIDS [Concomitant]

REACTIONS (13)
  - BRONCHITIS [None]
  - CHOLESTASIS [None]
  - EXCORIATION [None]
  - HEPATIC STEATOSIS [None]
  - HEPATITIS [None]
  - HYPERSENSITIVITY [None]
  - IMMUNE SYSTEM DISORDER [None]
  - INTERNATIONAL NORMALISED RATIO INCREASED [None]
  - LIVER INJURY [None]
  - LOCALISED INFECTION [None]
  - OEDEMA PERIPHERAL [None]
  - PAIN [None]
  - URINARY TRACT INFECTION [None]
